FAERS Safety Report 8979813 (Version 3)
Quarter: 2013Q4

REPORT INFORMATION
  Report Type: Report from Study
  Country: DE (occurrence: DE)
  Receive Date: 20121221
  Receipt Date: 20131230
  Transmission Date: 20140711
  Serious: Yes (Death, Other)
  Sender: FDA-Public Use
  Company Number: DE-CELGENEUS-062-21880-12111012

PATIENT
  Sex: 0

DRUGS (28)
  1. REVLIMID [Suspect]
     Indication: PLASMA CELL MYELOMA
     Route: 048
     Dates: start: 200904, end: 201208
  2. REVLIMID [Suspect]
     Route: 048
  3. REVLIMID [Suspect]
     Route: 048
  4. REVLIMID [Suspect]
     Route: 048
     Dates: start: 200708, end: 201307
  5. DEXAMETHASONE [Concomitant]
     Indication: PRODUCT USED FOR UNKNOWN INDICATION
     Route: 065
  6. DEXAMETHASONE [Concomitant]
     Route: 065
  7. DEXAMETHASONE [Concomitant]
     Route: 065
  8. DEXAMETHASONE [Concomitant]
     Route: 045
  9. DEXAMETHASONE [Concomitant]
     Route: 065
  10. EPIRUBICIN [Concomitant]
     Indication: PRODUCT USED FOR UNKNOWN INDICATION
     Route: 065
  11. BENDAMUSTINE [Concomitant]
     Indication: PLASMA CELL MYELOMA
     Route: 065
  12. BENDAMUSTINE [Concomitant]
     Route: 065
  13. BENDAMUSTINE [Concomitant]
     Route: 065
  14. BENDAMUSTINE [Concomitant]
     Route: 065
  15. BENDAMUSTINE [Concomitant]
     Route: 065
  16. BENDAMUSTINE [Concomitant]
     Route: 065
  17. CARFILZOMIB [Concomitant]
     Indication: PRODUCT USED FOR UNKNOWN INDICATION
     Route: 065
  18. ELOTUZUMAB [Concomitant]
     Indication: PRODUCT USED FOR UNKNOWN INDICATION
     Route: 065
  19. PIOGLITAZONE [Concomitant]
     Indication: PRODUCT USED FOR UNKNOWN INDICATION
     Route: 065
  20. RITUXIMAB [Concomitant]
     Indication: PRODUCT USED FOR UNKNOWN INDICATION
     Route: 065
  21. BORTEZOMIB [Concomitant]
     Indication: PRODUCT USED FOR UNKNOWN INDICATION
     Route: 065
  22. CYCLOPHOSPHAMIDE [Concomitant]
     Indication: PRODUCT USED FOR UNKNOWN INDICATION
     Route: 065
  23. AUY922 [Concomitant]
     Indication: PRODUCT USED FOR UNKNOWN INDICATION
     Route: 065
  24. THALIDOMIDE CELGENE [Concomitant]
     Indication: PRODUCT USED FOR UNKNOWN INDICATION
     Route: 048
  25. THALIDOMIDE CELGENE [Concomitant]
     Route: 065
  26. THALIDOMIDE CELGENE [Concomitant]
     Route: 065
  27. THALIDOMIDE CELGENE [Concomitant]
     Route: 045
  28. THALIDOMIDE CELGENE [Concomitant]
     Route: 065

REACTIONS (13)
  - Encephalitis viral [Fatal]
  - Thrombosis [Unknown]
  - Gait disturbance [Unknown]
  - Personality change [Unknown]
  - Gastrointestinal disorder [Unknown]
  - Mucosal inflammation [Unknown]
  - Haematotoxicity [Unknown]
  - Plasma cell myeloma [Unknown]
  - Fatigue [Unknown]
  - Muscle spasms [Unknown]
  - Infection [Unknown]
  - Polyneuropathy [Unknown]
  - Drug ineffective [Unknown]
